FAERS Safety Report 5470858-6 (Version None)
Quarter: 2007Q3

REPORT INFORMATION
  Report Type: 
  Country: None (occurrence: None)
  Receive Date: 20070928
  Receipt Date: 20070917
  Transmission Date: 20080115
  Serious: Yes (Hospitalization)
  Sender: FDA-Public Use
  Company Number: FR-ELI_LILLY_AND_COMPANY-FR_051007360

PATIENT
  Age: 54 Year
  Sex: Female

DRUGS (5)
  1. PROZAC [Suspect]
     Indication: DEPRESSION
     Dosage: 3 UNK, DAILY (1/D)
     Route: 048
     Dates: end: 20050913
  2. DERINOX [Concomitant]
     Dosage: UNK, AS NEEDED
     Route: 048
  3. RIVOTRIL [Concomitant]
     Dosage: UNK, UNKNOWN
     Route: 048
  4. IMIGRANE [Concomitant]
     Dosage: UNK, AS NEEDED
     Route: 048
  5. LEXOMIL [Concomitant]
     Dosage: UNK, UNKNOWN
     Route: 048

REACTIONS (2)
  - DYSPNOEA [None]
  - INTERSTITIAL LUNG DISEASE [None]
